FAERS Safety Report 22242666 (Version 2)
Quarter: 2023Q2

REPORT INFORMATION
  Report Type: Spontaneous
  Country: US (occurrence: US)
  Receive Date: 20230424
  Receipt Date: 20230509
  Transmission Date: 20230722
  Serious: Yes (Hospitalization, Other)
  Sender: FDA-Public Use
  Company Number: US-Covis Pharma GmbH-2023COV00953

PATIENT
  Age: 35 Year
  Sex: Female

DRUGS (2)
  1. MAKENA [Suspect]
     Active Substance: HYDROXYPROGESTERONE CAPROATE
     Indication: Premature delivery
     Route: 058
     Dates: start: 20221024, end: 20230130
  2. GLYBURIDE [Concomitant]
     Active Substance: GLYBURIDE
     Indication: Gestational diabetes
     Dates: start: 20230130, end: 20230204

REACTIONS (3)
  - Preterm premature rupture of membranes [Recovered/Resolved]
  - Amniotic cavity infection [Recovered/Resolved]
  - Premature delivery [Recovered/Resolved]

NARRATIVE: CASE EVENT DATE: 20230203
